FAERS Safety Report 25441780 (Version 1)
Quarter: 2025Q2

REPORT INFORMATION
  Report Type: Spontaneous
  Country: US (occurrence: US)
  Receive Date: 20250616
  Receipt Date: 20250616
  Transmission Date: 20250717
  Serious: Yes (Other)
  Sender: SUNOVION
  Company Number: US-SUMITOMO PHARMA SWITZERLAND GMBH-2025SPA007348

PATIENT

DRUGS (6)
  1. GEMTESA [Suspect]
     Active Substance: VIBEGRON
     Indication: Hypertonic bladder
     Route: 048
     Dates: end: 20250608
  2. TAMSULOSIN [Suspect]
     Active Substance: TAMSULOSIN
     Indication: Benign prostatic hyperplasia
     Route: 065
  3. FINASTERIDE [Suspect]
     Active Substance: FINASTERIDE
     Indication: Product used for unknown indication
     Route: 065
  4. MINERALS\VITAMINS [Concomitant]
     Active Substance: MINERALS\VITAMINS
     Route: 065
  5. ESOMEPRAZOLE [Concomitant]
     Active Substance: ESOMEPRAZOLE
     Route: 065
  6. METOPROLOL TARTRATE [Concomitant]
     Active Substance: METOPROLOL TARTRATE
     Indication: Dyspepsia
     Route: 065

REACTIONS (13)
  - Loss of consciousness [Unknown]
  - Urinary incontinence [Unknown]
  - Malaise [Unknown]
  - Cognitive disorder [Unknown]
  - Dyspnoea [Unknown]
  - Breast pain [Unknown]
  - Chest discomfort [Unknown]
  - Nocturia [Unknown]
  - Decreased appetite [Unknown]
  - Wheezing [Unknown]
  - Asthenia [Unknown]
  - Crying [Unknown]
  - Drug hypersensitivity [Unknown]
